FAERS Safety Report 6290716-7 (Version None)
Quarter: 2009Q3

REPORT INFORMATION
  Report Type: 
  Country: None (occurrence: None)
  Receive Date: 20090728
  Receipt Date: 20090728
  Transmission Date: 20100115
  Serious: Yes (Hospitalization)
  Sender: FDA-Public Use
  Company Number: None

PATIENT
  Age: 96 Year
  Sex: Female

DRUGS (5)
  1. LABETALOL HCL [Suspect]
     Indication: HYPERTENSION
     Dosage: LABETALOL 100MG PO
     Route: 048
  2. ASPIRIN [Concomitant]
  3. HYDROCHLOROTHIAZIDE [Suspect]
  4. LISINOPRIL [Suspect]
  5. ARICEPT [Suspect]

REACTIONS (3)
  - ASTHENIA [None]
  - BRADYCARDIA [None]
  - DIZZINESS [None]
